FAERS Safety Report 4365546-3 (Version None)
Quarter: 2004Q2

REPORT INFORMATION
  Report Type: 
  Country: None (occurrence: None)
  Receive Date: 20040526
  Receipt Date: 20040521
  Transmission Date: 20050107
  Serious: Yes (Other)
  Sender: FDA-Public Use
  Company Number: GB-GLAXOSMITHKLINE-B0333562A

PATIENT
  Age: 58 Year
  Sex: Male
  Weight: 92.95 kg

DRUGS (2)
  1. AVODART [Suspect]
     Dosage: .5MG UNKNOWN
     Route: 048
     Dates: start: 20040301
  2. TAMSULOSIN [Concomitant]
     Dosage: 400MG PER DAY
     Route: 048

REACTIONS (1)
  - VISUAL ACUITY REDUCED [None]
